FAERS Safety Report 6722873-X (Version None)
Quarter: 2010Q2

REPORT INFORMATION
  Report Type: 
  Country: None (occurrence: None)
  Receive Date: 20100512
  Receipt Date: 20100512
  Transmission Date: 20101027
  Serious: Yes (Life-Threatening, Hospitalization)
  Sender: FDA-Public Use
  Company Number: None

PATIENT
  Age: 3 Year
  Sex: Female
  Weight: 6.3504 kg

DRUGS (2)
  1. PRIVIGEN [Suspect]
     Indication: KAWASAKI'S DISEASE
     Dosage: 20 GM ONCE IV DRIP
     Route: 041
     Dates: start: 20100415, end: 20100416
  2. PRIVIGEN [Suspect]
     Dosage: 10 GM ONCE IV DRIP
     Route: 041

REACTIONS (4)
  - HAEMATOCRIT DECREASED [None]
  - HAEMOGLOBIN DECREASED [None]
  - HAEMOLYSIS [None]
  - HYPOTENSION [None]
